FAERS Safety Report 5744223-8 (Version None)
Quarter: 2008Q2

REPORT INFORMATION
  Report Type: 
  Country: None (occurrence: None)
  Receive Date: 20080520
  Receipt Date: 20080519
  Transmission Date: 20081010
  Serious: Yes (Disabling)
  Sender: FDA-Public Use
  Company Number: GB-BRISTOL-MYERS SQUIBB COMPANY-14195606

PATIENT
  Age: 63 Year
  Sex: Female

DRUGS (5)
  1. IRBESARTAN [Suspect]
     Dosage: TOOK MEDICATION IN THE EVENING
  2. ASPIRIN [Concomitant]
  3. BENDROFLUMETHIAZIDE [Concomitant]
  4. LEVOTHYROXINE SODIUM [Concomitant]
  5. RAMIPRIL [Concomitant]

REACTIONS (1)
  - CHEST DISCOMFORT [None]
